FAERS Safety Report 9617930 (Version 4)
Quarter: 2013Q4

REPORT INFORMATION
  Report Type: Report from Study
  Country: FR (occurrence: FR)
  Receive Date: 20131011
  Receipt Date: 20131206
  Transmission Date: 20140711
  Serious: Yes (Death, Hospitalization)
  Sender: FDA-Public Use
  Company Number: FR-EXELIXIS-XL18413003420

PATIENT
  Age: 81 Year
  Sex: Male
  Weight: 74 kg

DRUGS (7)
  1. XL184 [Suspect]
     Indication: PROSTATE CANCER
     Dosage: 60 MG, QD
     Route: 048
     Dates: start: 20121206, end: 20130522
  2. XL184 [Suspect]
     Dosage: 60 MG, QD
     Route: 048
     Dates: start: 20130606, end: 20130812
  3. XL184 [Suspect]
     Dosage: 60 MG, QD
     Route: 048
     Dates: start: 20130820, end: 20130910
  4. XL184 [Suspect]
     Indication: PROSTATE CANCER
     Dosage: 5 MG, BID
     Route: 048
     Dates: start: 20121206, end: 20130522
  5. XL184 [Suspect]
     Dosage: 5 MG, BID
     Route: 048
     Dates: start: 20130606, end: 20130812
  6. XL184 [Suspect]
     Dosage: 5 MG, BID
     Route: 048
     Dates: start: 20130820, end: 20130910
  7. ENANTONE [Concomitant]

REACTIONS (3)
  - Metastases to central nervous system [Fatal]
  - Renal failure acute [Recovered/Resolved]
  - Confusional state [Not Recovered/Not Resolved]
